FAERS Safety Report 6579687-3 (Version None)
Quarter: 2010Q1

REPORT INFORMATION
  Report Type: 
  Country: None (occurrence: None)
  Receive Date: 20100212
  Receipt Date: 20100204
  Transmission Date: 20100710
  Serious: Yes (Other)
  Sender: FDA-Public Use
  Company Number: US-SANOFI-AVENTIS-2010SA007584

PATIENT
  Sex: Female

DRUGS (2)
  1. LANTUS [Suspect]
     Route: 058
  2. OPTICLICK [Suspect]

REACTIONS (4)
  - ANKLE FRACTURE [None]
  - OSTEOPOROSIS [None]
  - VISUAL IMPAIRMENT [None]
  - WHEELCHAIR USER [None]
